FAERS Safety Report 8807514 (Version 1)
Quarter: 2012Q4

REPORT INFORMATION
  Report Type: 
  Country: US (occurrence: US)
  Receive Date: 20120925
  Receipt Date: 20120925
  Transmission Date: 20130627
  Serious: No
  Sender: FDA-Public Use
  Company Number: US-ASTRAZENECA-2012SE69900

PATIENT
  Age: 55 Year
  Sex: Female
  Weight: 90.7 kg

DRUGS (8)
  1. SEROQUEL [Suspect]
     Indication: BIPOLAR DISORDER
     Route: 048
  2. SEROQUEL [Suspect]
     Indication: SLEEP DISORDER
     Route: 048
  3. SEROQUEL [Suspect]
     Indication: BIPOLAR DISORDER
     Route: 048
  4. SEROQUEL [Suspect]
     Indication: SLEEP DISORDER
     Route: 048
  5. SEROQUEL [Suspect]
     Indication: BIPOLAR DISORDER
     Route: 048
     Dates: start: 2003
  6. SEROQUEL [Suspect]
     Indication: SLEEP DISORDER
     Route: 048
     Dates: start: 2003
  7. KLONOPIN [Concomitant]
     Indication: ANXIETY
  8. RACEM [Concomitant]
     Indication: SLEEP DISORDER

REACTIONS (9)
  - Anger [Unknown]
  - Headache [Unknown]
  - Insomnia [Unknown]
  - Malaise [Unknown]
  - Adverse drug reaction [Unknown]
  - Dizziness [Unknown]
  - Blood glucose increased [Unknown]
  - Intentional drug misuse [Unknown]
  - Drug ineffective [Unknown]
